FAERS Safety Report 10260190 (Version 1)
Quarter: 2014Q2

REPORT INFORMATION
  Report Type: Spontaneous
  Country: US (occurrence: US)
  Receive Date: 20140625
  Receipt Date: 20140625
  Transmission Date: 20141212
  Serious: No
  Sender: FDA-Public Use
  Company Number: US-GILEAD-2014-0106652

PATIENT
  Age: 71 Year
  Sex: 0

DRUGS (5)
  1. RANEXA [Suspect]
     Indication: ANGINA PECTORIS
     Dosage: 500 MG, BID
     Route: 065
     Dates: start: 201406
  2. ASPIRIN [Concomitant]
  3. PLAVIX [Concomitant]
  4. PRAVACHOL [Concomitant]
  5. METOPROLOL [Concomitant]

REACTIONS (1)
  - Vision blurred [Recovered/Resolved]
